FAERS Safety Report 9392994 (Version 2)
Quarter: 2013Q3

REPORT INFORMATION
  Report Type: Spontaneous
  Country: DE (occurrence: None)
  Receive Date: 20130705
  Receipt Date: 20130812
  Transmission Date: 20140515
  Serious: Yes (Hospitalization)
  Sender: FDA-Public Use
  Company Number: AG-2013-014515

PATIENT
  Age: 78 Year
  Sex: Female

DRUGS (3)
  1. CHLORAMBUCIL [Suspect]
     Indication: CHRONIC LYMPHOCYTIC LEUKAEMIA
     Route: 048
     Dates: start: 20120131, end: 20130612
  2. OBINUTUZUMAB (MONOCLONAL ANTIBODIES) (UNKNOWN) [Suspect]
     Indication: CHRONIC LYMPHOCYTIC LEUKAEMIA
     Route: 042
     Dates: start: 20120131, end: 20120626
  3. CEPHALOSPORIN (OTHER BETA-LACTAM ANTIBACTERIALS) [Concomitant]

REACTIONS (1)
  - Endocarditis [None]
